FAERS Safety Report 22708901 (Version 2)
Quarter: 2023Q4

REPORT INFORMATION
  Report Type: Report from Study
  Country: US (occurrence: US)
  Receive Date: 20230716
  Receipt Date: 20231121
  Transmission Date: 20240109
  Serious: Yes (Other)
  Sender: FDA-Public Use
  Company Number: US-ABBVIE-4343821

PATIENT
  Sex: Male

DRUGS (3)
  1. SKYRIZI [Suspect]
     Active Substance: RISANKIZUMAB-RZAA
     Indication: Psoriatic arthropathy
     Dosage: WEEK FOUR, 1 IN ONCE?FORM STRENGTH: 150 MILLIGRAM
     Route: 058
     Dates: start: 20230214, end: 20230214
  2. SKYRIZI [Suspect]
     Active Substance: RISANKIZUMAB-RZAA
     Dosage: WEEK ZERO, 1 IN ONCE?FORM STRENGTH: 150 MILLIGRAM
     Route: 058
     Dates: start: 20230117, end: 20230117
  3. SKYRIZI [Suspect]
     Active Substance: RISANKIZUMAB-RZAA
     Dosage: WEEK 0, WEEK 4 AND EVERY 12 WEEKS THEREAFTER
     Route: 058
     Dates: start: 20230509, end: 20231114

REACTIONS (4)
  - Cartilage injury [Recovering/Resolving]
  - Hair growth abnormal [Recovered/Resolved]
  - Nail growth abnormal [Not Recovered/Not Resolved]
  - Arthralgia [Not Recovered/Not Resolved]

NARRATIVE: CASE EVENT DATE: 20230101
